FAERS Safety Report 17454409 (Version 1)
Quarter: 2020Q1

REPORT INFORMATION
  Report Type: Spontaneous
  Country: SI (occurrence: SI)
  Receive Date: 20200225
  Receipt Date: 20200225
  Transmission Date: 20200409
  Serious: Yes (Life-Threatening, Hospitalization, Other)
  Sender: FDA-Public Use
  Company Number: SI-ALVOGEN-2020-ALVOGEN-107693

PATIENT
  Age: 52 Year
  Sex: Female

DRUGS (4)
  1. DULOXETINE. [Interacting]
     Active Substance: DULOXETINE
     Indication: MAJOR DEPRESSION
     Dosage: 90 MG, QD
  2. DULOXETINE. [Interacting]
     Active Substance: DULOXETINE
     Indication: MAJOR DEPRESSION
     Dosage: 30 MG, QD
  3. ZOLPIDEM [Concomitant]
     Active Substance: ZOLPIDEM TARTRATE
     Indication: PRODUCT USED FOR UNKNOWN INDICATION
     Dosage: 5 MG, QD
  4. BUPROPION. [Suspect]
     Active Substance: BUPROPION
     Indication: MAJOR DEPRESSION
     Dosage: 300 MG, QD
     Route: 065

REACTIONS (6)
  - Drug interaction [Recovered/Resolved]
  - Palpitations [Recovered/Resolved]
  - Loss of consciousness [Recovered/Resolved]
  - Long QT syndrome [Recovered/Resolved]
  - Toxicity to various agents [Recovered/Resolved]
  - Sinus arrhythmia [Recovered/Resolved]
